FAERS Safety Report 5227634-9 (Version None)
Quarter: 2007Q1

REPORT INFORMATION
  Report Type: 
  Country: None (occurrence: None)
  Receive Date: 20070130
  Receipt Date: 20061130
  Transmission Date: 20070707
  Serious: Yes (Death)
  Sender: FDA-Public Use
  Company Number: T200601523

PATIENT
  Age: 51 Year
  Sex: Male

DRUGS (1)
  1. HYDROCODONE/ACETAMINOPHEN (HYDROCODONE BITARTRATE, ACETAMINOPHEN TABLE [Suspect]
     Dosage: 110 TABLETS, SINGLE, ORAL
     Route: 048

REACTIONS (10)
  - ALANINE AMINOTRANSFERASE INCREASED [None]
  - ASPARTATE AMINOTRANSFERASE INCREASED [None]
  - BLOOD BILIRUBIN INCREASED [None]
  - BRADYCARDIA [None]
  - COMPLETED SUICIDE [None]
  - CYANOSIS [None]
  - HYPOGLYCAEMIA [None]
  - INCORRECT DOSE ADMINISTERED [None]
  - LOSS OF CONSCIOUSNESS [None]
  - SOMNOLENCE [None]
